FAERS Safety Report 8927619 (Version 1)
Quarter: 2012Q4

REPORT INFORMATION
  Report Type: 
  Country: FR (occurrence: FR)
  Receive Date: 20121127
  Receipt Date: 20121127
  Transmission Date: 20130627
  Serious: Yes (Hospitalization)
  Sender: FDA-Public Use
  Company Number: PHHY2012FR095938

PATIENT
  Age: 80 Year
  Sex: Female
  Weight: 66 kg

DRUGS (4)
  1. ACLASTA/ZOLEDRONATE [Suspect]
     Indication: OSTEOPOROTIC FRACTURE
     Route: 042
     Dates: start: 20110428
  2. ACLASTA/ZOLEDRONATE [Suspect]
     Route: 042
     Dates: start: 20120524
  3. GLUCOSAMINE + CHONDROITIN [Concomitant]
     Dates: start: 2011
  4. VOLTARENE [Concomitant]

REACTIONS (5)
  - Atrioventricular block complete [Unknown]
  - Bundle branch block right [Unknown]
  - Heart rate abnormal [Unknown]
  - Fall [Unknown]
  - Femur fracture [Recovering/Resolving]
